FAERS Safety Report 25178705 (Version 1)
Quarter: 2025Q2

REPORT INFORMATION
  Report Type: Spontaneous
  Country: HR (occurrence: HR)
  Receive Date: 20250409
  Receipt Date: 20250409
  Transmission Date: 20250717
  Serious: Yes (Other)
  Sender: TEVA
  Company Number: None

PATIENT
  Age: 16 Year
  Sex: Female

DRUGS (2)
  1. OLANZAPINE [Suspect]
     Active Substance: OLANZAPINE
     Indication: Product used for unknown indication
     Route: 048
     Dates: start: 20250202, end: 20250202
  2. LAMOTRIGINE [Suspect]
     Active Substance: LAMOTRIGINE
     Indication: Product used for unknown indication
     Route: 048
     Dates: start: 20250202, end: 20250202

REACTIONS (5)
  - Suicide attempt [Unknown]
  - Somnolence [Unknown]
  - Stupor [Unknown]
  - Bradypnoea [Unknown]
  - Miosis [Unknown]

NARRATIVE: CASE EVENT DATE: 20250202
